FAERS Safety Report 21942055 (Version 1)
Quarter: 2023Q1

REPORT INFORMATION
  Report Type: Report from Study
  Country: US (occurrence: US)
  Receive Date: 20230202
  Receipt Date: 20230202
  Transmission Date: 20230418
  Serious: No
  Sender: FDA-Public Use
  Company Number: US-EXELIXIS-CABO-22056453

PATIENT
  Sex: Male

DRUGS (27)
  1. CABOMETYX [Suspect]
     Active Substance: CABOZANTINIB S-MALATE
     Indication: Colon cancer
     Dosage: 60 MG, QD
     Dates: start: 20220908
  2. AMLODIPINE [Concomitant]
     Active Substance: AMLODIPINE BESYLATE
     Dosage: UNK
  3. LOSARTAN [Concomitant]
     Active Substance: LOSARTAN
     Dosage: UNK
  4. LUMAKRAS [Concomitant]
     Active Substance: SOTORASIB
     Dosage: UNK
  5. ZOFRAN [Concomitant]
     Active Substance: ONDANSETRON HYDROCHLORIDE
     Dosage: UNK
  6. DIETARY SUPPLEMENT [Concomitant]
     Active Substance: DIETARY SUPPLEMENT
     Dosage: UNK
  7. CANNABIDIOL [Concomitant]
     Active Substance: CANNABIDIOL
     Dosage: UNK
  8. MELATONIN [Concomitant]
     Active Substance: MELATONIN
     Dosage: UNK
  9. ZINC [Concomitant]
     Active Substance: ZINC
     Dosage: UNK
  10. Colon X [Concomitant]
     Dosage: UNK
  11. CELEBREX [Concomitant]
     Active Substance: CELECOXIB
     Dosage: UNK
  12. TYKERB [Concomitant]
     Active Substance: LAPATINIB DITOSYLATE
     Dosage: UNK
  13. TABRECTA [Concomitant]
     Active Substance: CAPMATINIB
     Dosage: UNK
  14. DOXYCYCLINE [Concomitant]
     Active Substance: DOXYCYCLINE
     Dosage: UNK
  15. CAPECITABINE [Concomitant]
     Active Substance: CAPECITABINE
     Dosage: UNK
  16. TAGRISSO [Concomitant]
     Active Substance: OSIMERTINIB
     Dosage: UNK
  17. Elemax [Concomitant]
     Dosage: UNK
  18. BURBURIN [Concomitant]
     Dosage: UNK
  19. VITAMIN C [Concomitant]
     Active Substance: ASCORBIC ACID
     Dosage: UNK
  20. VITAMIN K [Concomitant]
     Active Substance: PHYTONADIONE
     Dosage: UNK
  21. VITAMIN A [Concomitant]
     Active Substance: VITAMIN A
     Dosage: UNK
  22. Xymodine [Concomitant]
     Dosage: UNK
  23. Xymozine [Concomitant]
     Dosage: UNK
  24. PANTOPRAZOLE [Concomitant]
     Active Substance: PANTOPRAZOLE
     Dosage: UNK
  25. AMBIEN [Concomitant]
     Active Substance: ZOLPIDEM TARTRATE
     Dosage: UNK
  26. DILTIAZEM [Concomitant]
     Active Substance: DILTIAZEM
     Dosage: UNK
  27. FIVE STRAIN BACTERIUM [Concomitant]

REACTIONS (4)
  - Dyschezia [Unknown]
  - Pruritus [Recovering/Resolving]
  - Fatigue [Not Recovered/Not Resolved]
  - Off label use [Unknown]
